FAERS Safety Report 5578032-X (Version None)
Quarter: 2007Q4

REPORT INFORMATION
  Report Type: 
  Country: None (occurrence: None)
  Receive Date: 20071231
  Receipt Date: 20071221
  Transmission Date: 20080405
  Serious: Yes (Hospitalization)
  Sender: FDA-Public Use
  Company Number: US-AVENTIS-200721701GDDC

PATIENT
  Age: 79 Year
  Sex: Male
  Weight: 84.1 kg

DRUGS (2)
  1. TAXOTERE [Suspect]
     Route: 042
     Dates: start: 20071123, end: 20071214
  2. GEMZAR [Suspect]
     Route: 042
     Dates: start: 20071123, end: 20071214

REACTIONS (1)
  - OESOPHAGEAL FISTULA [None]
